FAERS Safety Report 20367735 (Version 1)
Quarter: 2022Q1

REPORT INFORMATION
  Report Type: Spontaneous
  Country: US (occurrence: US)
  Receive Date: 20220124
  Receipt Date: 20220124
  Transmission Date: 20220423
  Serious: No
  Sender: FDA-Public Use
  Company Number: US-BIOGEN-2022BI01087557

PATIENT
  Sex: Female

DRUGS (1)
  1. TYSABRI [Suspect]
     Active Substance: NATALIZUMAB
     Indication: Multiple sclerosis
     Route: 065
     Dates: start: 20101202

REACTIONS (7)
  - Feeling hot [Unknown]
  - Neuropathy peripheral [Unknown]
  - Accident [Unknown]
  - Jaw fracture [Unknown]
  - Limb fracture [Unknown]
  - Fracture [Unknown]
  - Pain in extremity [Unknown]
